FAERS Safety Report 5162387-4 (Version None)
Quarter: 2006Q4

REPORT INFORMATION
  Report Type: 
  Country: None (occurrence: None)
  Receive Date: 20061129
  Receipt Date: 20061129
  Transmission Date: 20070319
  Serious: Yes (Hospitalization)
  Sender: FDA-Public Use
  Company Number: None

PATIENT
  Age: 79 Year
  Sex: Female
  Weight: 81.6 kg

DRUGS (2)
  1. LEVAQUIN [Suspect]
     Indication: SINUSITIS
     Dosage: 500MG TABLET DAILY PO
     Route: 048
     Dates: start: 20061103, end: 20061108
  2. LEVAQUIN [Suspect]
     Indication: SINUSITIS
     Dosage: 500MG TABLET DAILY PO
     Route: 048
     Dates: start: 20061125, end: 20061126

REACTIONS (4)
  - ANGIONEUROTIC OEDEMA [None]
  - SINUSITIS [None]
  - STOMATITIS [None]
  - TONGUE ULCERATION [None]
